FAERS Safety Report 8501172-X (Version None)
Quarter: 2012Q3

REPORT INFORMATION
  Report Type: 
  Country: None (occurrence: None)
  Receive Date: 20120710
  Receipt Date: 20120705
  Transmission Date: 20120928
  Serious: Yes (Death)
  Sender: FDA-Public Use
  Company Number: US-ACTELION-A-US2012-67198

PATIENT

DRUGS (1)
  1. VENTAVIS [Suspect]
     Indication: PULMONARY ARTERIAL HYPERTENSION
     Dosage: 2.5 UG, UNK
     Route: 055
     Dates: start: 20120607, end: 20120607

REACTIONS (5)
  - DIZZINESS [None]
  - PRESYNCOPE [None]
  - DISEASE PROGRESSION [None]
  - NAUSEA [None]
  - MALAISE [None]
